FAERS Safety Report 13625640 (Version 1)
Quarter: 2017Q2

REPORT INFORMATION
  Report Type: Spontaneous
  Country: US (occurrence: US)
  Receive Date: 20170608
  Receipt Date: 20170608
  Transmission Date: 20170830
  Serious: Yes (Hospitalization)
  Sender: FDA-Public Use
  Company Number: US-UNITED THERAPEUTICS-UNT-2017-005979

PATIENT
  Age: 3 Year
  Sex: Male
  Weight: 15.87 kg

DRUGS (7)
  1. REMODULIN [Suspect]
     Active Substance: TREPROSTINIL
     Dosage: 0.048 ?G/KG, CONTINUING
     Route: 041
  2. REMODULIN [Suspect]
     Active Substance: TREPROSTINIL
     Dosage: 0.039 ?G/KG, CONTINUING
     Route: 041
     Dates: start: 20150120
  3. COUMADIN [Concomitant]
     Active Substance: WARFARIN SODIUM
     Indication: PRODUCT USED FOR UNKNOWN INDICATION
     Dosage: 4 MG, EVERY M,W,F,SAT
     Route: 065
  4. FERROUS SULFATE. [Concomitant]
     Active Substance: FERROUS SULFATE
     Indication: PRODUCT USED FOR UNKNOWN INDICATION
     Dosage: 45 MG, BID
     Route: 048
  5. COUMADIN [Concomitant]
     Active Substance: WARFARIN SODIUM
     Dosage: 5 MG,EVERY TU,TH
     Route: 065
  6. REMODULIN [Suspect]
     Active Substance: TREPROSTINIL
     Indication: PULMONARY HYPERTENSION
     Dosage: 0.038 ?G/KG, CONTINUING
     Route: 041
     Dates: start: 20150113
  7. SILDENAFIL CITRATE. [Concomitant]
     Active Substance: SILDENAFIL CITRATE
     Indication: PRODUCT USED FOR UNKNOWN INDICATION
     Dosage: 16 MG, TID
     Route: 048

REACTIONS (3)
  - Infection [Unknown]
  - Device related infection [Unknown]
  - Bacteraemia [Unknown]

NARRATIVE: CASE EVENT DATE: 201703
